FAERS Safety Report 4499217-X (Version None)
Quarter: 2004Q4

REPORT INFORMATION
  Report Type: 
  Country: None (occurrence: None)
  Receive Date: 20041111
  Receipt Date: 20041102
  Transmission Date: 20050328
  Serious: Yes (Hospitalization)
  Sender: FDA-Public Use
  Company Number: FR-GLAXOSMITHKLINE-B0350122A

PATIENT
  Age: 62 Year
  Sex: Female

DRUGS (2)
  1. DEROXAT [Suspect]
     Indication: ILL-DEFINED DISORDER
     Dosage: 20MG THREE TIMES PER WEEK
     Route: 048
  2. TEGRETOL [Suspect]
     Dosage: 400MG PER DAY
     Route: 048

REACTIONS (8)
  - ASTHENIA [None]
  - GASTROINTESTINAL DISORDER [None]
  - HYPONATRAEMIA [None]
  - INFLAMMATION [None]
  - LUNG DISORDER [None]
  - NAUSEA [None]
  - TRANSAMINASES INCREASED [None]
  - VOMITING [None]
